FAERS Safety Report 6185394-1 (Version None)
Quarter: 2009Q2

REPORT INFORMATION
  Report Type: 
  Country: None (occurrence: None)
  Receive Date: 20090511
  Receipt Date: 20090428
  Transmission Date: 20091009
  Serious: Yes (Other)
  Sender: FDA-Public Use
  Company Number: JP-BAYER-200911361BYL

PATIENT
  Age: 61 Year
  Sex: Female
  Weight: 65 kg

DRUGS (9)
  1. FLUDARA [Suspect]
     Indication: ACUTE MYELOID LEUKAEMIA
     Dosage: AS USED: 25 MG/M2  UNIT DOSE: 50 MG
     Route: 042
     Dates: start: 20081113, end: 20081117
  2. ALKERAN [Concomitant]
     Indication: ACUTE MYELOID LEUKAEMIA
     Dosage: AS USED: 40 MG/M2
     Route: 042
     Dates: start: 20081114, end: 20081114
  3. ALKERAN [Concomitant]
     Dosage: AS USED: 40 MG/M2
     Route: 042
     Dates: start: 20081117, end: 20081117
  4. METHOTREXATE [Concomitant]
     Dosage: AS USED: 17 MG
     Route: 042
     Dates: start: 20081120, end: 20081120
  5. METHOTREXATE [Concomitant]
     Dosage: AS USED: 12 MG
     Route: 042
     Dates: start: 20081125, end: 20081125
  6. METHOTREXATE [Concomitant]
     Dosage: AS USED: 12 MG
     Route: 041
     Dates: start: 20081130, end: 20081130
  7. METHOTREXATE [Concomitant]
     Dosage: AS USED: 12 MG
     Route: 042
     Dates: start: 20081122, end: 20081122
  8. CONCENTRATED RED CELLS [Concomitant]
     Indication: PACKED RED BLOOD CELL TRANSFUSION
     Route: 042
     Dates: start: 20081114, end: 20081207
  9. PLATELETS [Concomitant]
     Indication: PLATELET TRANSFUSION
     Route: 042
     Dates: start: 20081122, end: 20081211

REACTIONS (1)
  - ACUTE GRAFT VERSUS HOST DISEASE [None]
